FAERS Safety Report 23749618 (Version 2)
Quarter: 2024Q2

REPORT INFORMATION
  Report Type: Other
  Country: US (occurrence: US)
  Receive Date: 20240416
  Receipt Date: 20240604
  Transmission Date: 20240715
  Serious: Yes (Hospitalization, Other)
  Sender: FDA-Public Use
  Company Number: US-TRAVERE-2024TVT00349

PATIENT
  Sex: Male
  Weight: 84.82 kg

DRUGS (10)
  1. FILSPARI [Suspect]
     Active Substance: SPARSENTAN
     Indication: IgA nephropathy
     Route: 048
     Dates: start: 20240315
  2. FILSPARI [Suspect]
     Active Substance: SPARSENTAN
     Route: 048
  3. MAGNESIUM [Concomitant]
     Active Substance: MAGNESIUM
  4. VITAMIN D3 [Concomitant]
     Active Substance: CHOLECALCIFEROL
  5. ALENDRONATE SODIUM [Concomitant]
     Active Substance: ALENDRONATE SODIUM
  6. BACTRIM DS [Concomitant]
     Active Substance: SULFAMETHOXAZOLE\TRIMETHOPRIM
  7. NEXIUM [Concomitant]
     Active Substance: ESOMEPRAZOLE MAGNESIUM
  8. PREDNISONE [Concomitant]
     Active Substance: PREDNISONE
  9. CYANOCOBALAMIN [Concomitant]
     Active Substance: CYANOCOBALAMIN
  10. XARELTO [Concomitant]
     Active Substance: RIVAROXABAN

REACTIONS (3)
  - Large intestinal obstruction [Unknown]
  - Skin texture abnormal [Unknown]
  - Blood potassium abnormal [Unknown]
